FAERS Safety Report 23753965 (Version 1)
Quarter: 2024Q2

REPORT INFORMATION
  Report Type: Spontaneous
  Country: US (occurrence: US)
  Receive Date: 20240417
  Receipt Date: 20240417
  Transmission Date: 20240715
  Serious: No
  Sender: FDA-Public Use
  Company Number: US-DAIICHI SANKYO, INC.-DSU-2024-116661AA

PATIENT
  Age: 71 Year
  Sex: Female

DRUGS (1)
  1. ENHERTU [Suspect]
     Active Substance: FAM-TRASTUZUMAB DERUXTECAN-NXKI
     Indication: Endometrial cancer
     Dosage: UNK
     Route: 065

REACTIONS (4)
  - Interstitial lung disease [Unknown]
  - Pneumonitis [Unknown]
  - Pneumonia [Recovering/Resolving]
  - Off label use [Unknown]
